FAERS Safety Report 9998204 (Version 2)
Quarter: 2014Q1

REPORT INFORMATION
  Report Type: Report from Study
  Country: AR (occurrence: AR)
  Receive Date: 20140311
  Receipt Date: 20140311
  Transmission Date: 20141002
  Serious: Yes (Hospitalization)
  Sender: FDA-Public Use
  Company Number: AR-ASTRAZENECA-2014SE10842

PATIENT
  Age: 28106 Day
  Sex: Female

DRUGS (11)
  1. FASLODEX [Suspect]
     Indication: BREAST CANCER METASTATIC
     Route: 030
     Dates: start: 20131010
  2. PLACEBO [Suspect]
     Indication: BREAST CANCER METASTATIC
     Dosage: DAILY
     Route: 048
     Dates: start: 20131010, end: 20140108
  3. PLACEBO [Suspect]
     Indication: BREAST CANCER METASTATIC
     Dosage: DAILY
     Route: 048
     Dates: start: 20140108
  4. CARVELILOL [Concomitant]
     Indication: ARRHYTHMIA
     Route: 048
     Dates: start: 20130506
  5. LOSARTAN [Concomitant]
     Indication: HYPERTENSION
     Route: 048
  6. FUROSEMIDE [Concomitant]
     Indication: HYPERTENSION
     Route: 048
  7. ROSUVASTATINE [Concomitant]
     Indication: HYPERCHOLESTEROLAEMIA
     Route: 048
  8. ALPRAZOLAM [Concomitant]
     Indication: DEPRESSION
     Route: 048
  9. SULPIRIDE [Concomitant]
     Indication: DEPRESSION
     Route: 048
  10. PAROXETINE [Concomitant]
     Indication: DEPRESSION
     Route: 048
  11. IBUPROFEN [Concomitant]
     Indication: SCIATICA
     Route: 048
     Dates: start: 20131104

REACTIONS (1)
  - Gastroenteritis [Recovered/Resolved]
